FAERS Safety Report 10199506 (Version 2)
Quarter: 2014Q2

REPORT INFORMATION
  Report Type: Report from Study
  Country: JP (occurrence: JP)
  Receive Date: 20140527
  Receipt Date: 20140630
  Transmission Date: 20141212
  Serious: Yes (Other)
  Sender: FDA-Public Use
  Company Number: JP-BAXTER-2014BAX025726

PATIENT
  Sex: Male

DRUGS (3)
  1. SUPRANE [Suspect]
     Indication: SEDATION
     Route: 055
     Dates: start: 20140410, end: 20140410
  2. REMIFENTANIL HYDROCHLORIDE [Concomitant]
     Indication: ANALGESIC THERAPY
     Route: 042
     Dates: start: 20140410, end: 20140410
  3. ROCURONIUM BROMIDE [Concomitant]
     Indication: MUSCLE RELAXANT THERAPY
     Route: 042
     Dates: start: 20140410, end: 20140410

REACTIONS (2)
  - Airway complication of anaesthesia [Recovered/Resolved]
  - Wrong technique in drug usage process [Recovered/Resolved]
